FAERS Safety Report 9153911 (Version 1)
Quarter: 2013Q1

REPORT INFORMATION
  Report Type: Spontaneous
  Country: CN (occurrence: CN)
  Receive Date: 20130311
  Receipt Date: 20130311
  Transmission Date: 20140127
  Serious: Yes (Death)
  Sender: FDA-Public Use
  Company Number: CN-ASTELLAS-2013JP003604

PATIENT
  Sex: 0

DRUGS (3)
  1. TACROLIMUS [Suspect]
     Indication: IMMUNOSUPPRESSANT DRUG THERAPY
     Route: 065
  2. MYCOPHENOLATE MOFETIL [Concomitant]
     Indication: IMMUNOSUPPRESSANT DRUG THERAPY
     Route: 065
  3. CORTICOSTEROID NOS [Concomitant]
     Indication: IMMUNOSUPPRESSANT DRUG THERAPY
     Route: 065

REACTIONS (1)
  - Multi-organ failure [Fatal]
